FAERS Safety Report 17507381 (Version 1)
Quarter: 2020Q1

REPORT INFORMATION
  Report Type: Spontaneous
  Country: US (occurrence: US)
  Receive Date: 20200306
  Receipt Date: 20200306
  Transmission Date: 20200409
  Serious: No
  Sender: FDA-Public Use
  Company Number: US-UCBSA-2019020845

PATIENT

DRUGS (2)
  1. BRIVIACT [Suspect]
     Active Substance: BRIVARACETAM
     Indication: PRODUCT USED FOR UNKNOWN INDICATION
     Dosage: 50 MILLIGRAM, 2X/DAY (BID)
     Dates: start: 2019
  2. BRIVIACT [Suspect]
     Active Substance: BRIVARACETAM
     Dosage: CUT THE 50 MG TABLET INTO HALF TO 25 MG

REACTIONS (3)
  - Somnolence [Unknown]
  - Abdominal pain upper [Unknown]
  - Off label use [Unknown]
